FAERS Safety Report 7978256-8 (Version None)
Quarter: 2011Q4

REPORT INFORMATION
  Report Type: 
  Country: None (occurrence: None)
  Receive Date: 20111129
  Receipt Date: 20110629
  Transmission Date: 20120403
  Serious: No
  Sender: FDA-Public Use
  Company Number: PHHY2011US58328

PATIENT
  Age: 71 Year
  Sex: Male

DRUGS (1)
  1. AFINITOR [Suspect]
     Dosage: UNK UKN, UNK, ORAL
     Route: 048
     Dates: start: 20110601

REACTIONS (5)
  - STOMATITIS [None]
  - GENERAL PHYSICAL CONDITION ABNORMAL [None]
  - MALAISE [None]
  - APHAGIA [None]
  - LETHARGY [None]
